FAERS Safety Report 6909213-8 (Version None)
Quarter: 2010Q3

REPORT INFORMATION
  Report Type: 
  Country: None (occurrence: None)
  Receive Date: 20100805
  Receipt Date: 20100730
  Transmission Date: 20110219
  Serious: Yes (Other)
  Sender: FDA-Public Use
  Company Number: US-BAYER-200829369NA

PATIENT
  Age: 73 Year
  Sex: Female
  Weight: 73 kg

DRUGS (22)
  1. MAGNEVIST [Suspect]
     Indication: NUCLEAR MAGNETIC RESONANCE IMAGING BRAIN
     Dosage: TOTAL DAILY DOSE: 20 ML
     Route: 042
     Dates: start: 20060629, end: 20060629
  2. OMNISCAN [Suspect]
     Indication: NUCLEAR MAGNETIC RESONANCE IMAGING
  3. OPTIMARK [Suspect]
     Indication: NUCLEAR MAGNETIC RESONANCE IMAGING
  4. MULTIHANCE [Suspect]
     Indication: NUCLEAR MAGNETIC RESONANCE IMAGING
  5. PROHANCE [Suspect]
     Indication: NUCLEAR MAGNETIC RESONANCE IMAGING
  6. SYNTHROID [Concomitant]
     Indication: HYPOTHYROIDISM
  7. PREDNISONE [Concomitant]
     Indication: ARTHRITIS
     Dates: start: 20050101
  8. ALTACE [Concomitant]
     Indication: BLOOD PRESSURE INCREASED
     Dates: start: 20070101
  9. LIPITOR [Concomitant]
     Indication: BLOOD CHOLESTEROL INCREASED
     Dates: start: 20050101
  10. ASPIRIN [Concomitant]
     Indication: THROMBOSIS PROPHYLAXIS
     Dosage: TOTAL DAILY DOSE: 81 MG  UNIT DOSE: 81 MG
     Route: 048
  11. IRON [Concomitant]
     Indication: ANAEMIA
  12. VITAMIN B-12 [Concomitant]
  13. PLAVIX [Concomitant]
     Indication: THROMBOSIS PROPHYLAXIS
     Dates: start: 20060801
  14. NAPROXEN [Concomitant]
     Indication: ARTHRITIS
     Dates: start: 20010101
  15. CIPRO [Concomitant]
  16. COLCHICINE [Concomitant]
  17. PRESCRIPTION CREAM APPLIED TO LEGS NOS [Concomitant]
     Dosage: APPLIED TO LEGS
     Route: 061
  18. PREMARIN [Concomitant]
  19. ZYRTEC [Concomitant]
  20. PROTONIX [Concomitant]
  21. DARVOCET [Concomitant]
  22. LASIX [Concomitant]

REACTIONS (16)
  - ANXIETY [None]
  - DEPRESSION [None]
  - DRY EYE [None]
  - DRY SKIN [None]
  - EMOTIONAL DISTRESS [None]
  - GENERAL PHYSICAL HEALTH DETERIORATION [None]
  - INJURY [None]
  - MOBILITY DECREASED [None]
  - NEPHROGENIC SYSTEMIC FIBROSIS [None]
  - OCULAR HYPERAEMIA [None]
  - OEDEMA PERIPHERAL [None]
  - PAIN [None]
  - PAIN IN EXTREMITY [None]
  - SKIN HYPERTROPHY [None]
  - SKIN INDURATION [None]
  - SKIN LESION [None]
